FAERS Safety Report 7894089-5 (Version None)
Quarter: 2011Q4

REPORT INFORMATION
  Report Type: 
  Country: None (occurrence: None)
  Receive Date: 20111104
  Receipt Date: 20111101
  Transmission Date: 20120403
  Serious: No
  Sender: FDA-Public Use
  Company Number: US-PFIZER INC-2011268105

PATIENT
  Sex: Female

DRUGS (2)
  1. VICTOZA [Suspect]
     Dosage: UNK
  2. LIPITOR [Suspect]
     Dosage: UNK

REACTIONS (3)
  - NAUSEA [None]
  - HEADACHE [None]
  - URINE ODOUR ABNORMAL [None]
